FAERS Safety Report 16421486 (Version 1)
Quarter: 2019Q2

REPORT INFORMATION
  Report Type: Spontaneous
  Country: US (occurrence: US)
  Receive Date: 20190612
  Receipt Date: 20190612
  Transmission Date: 20190711
  Serious: Yes (Other)
  Sender: FDA-Public Use
  Company Number: US-SA-2019SA157450

PATIENT
  Age: 65 Year
  Sex: Male

DRUGS (1)
  1. CABLIVI [Suspect]
     Active Substance: CAPLACIZUMAB-YHDP
     Indication: THROMBOTIC MICROANGIOPATHY
     Dosage: 11 MG, QD
     Route: 065
     Dates: start: 20190601

REACTIONS (7)
  - Anal fissure [Unknown]
  - Rectal haemorrhage [Unknown]
  - Arthralgia [Unknown]
  - Hypertension [Unknown]
  - Platelet count decreased [Unknown]
  - Lymphocyte count abnormal [Unknown]
  - Platelet aggregation [Unknown]
